FAERS Safety Report 11792927 (Version 1)
Quarter: 2015Q4

REPORT INFORMATION
  Report Type: Spontaneous
  Country: SK (occurrence: SK)
  Receive Date: 20151202
  Receipt Date: 20151202
  Transmission Date: 20160305
  Serious: Yes (Hospitalization)
  Sender: FDA-Public Use
  Company Number: SK-ROCHE-1668594

PATIENT
  Age: 21 Year
  Sex: Male

DRUGS (1)
  1. MABTHERA [Suspect]
     Active Substance: RITUXIMAB
     Indication: B-CELL LYMPHOMA
     Route: 042

REACTIONS (6)
  - Abscess [Recovered/Resolved]
  - Cardiac failure chronic [Recovered/Resolved]
  - Intervertebral discitis [Recovered/Resolved]
  - Endocarditis [Recovered/Resolved]
  - Hypogammaglobulinaemia [Recovered/Resolved]
  - Erysipelas [Recovered/Resolved]

NARRATIVE: CASE EVENT DATE: 200710
